FAERS Safety Report 24089647 (Version 1)
Quarter: 2024Q3

REPORT INFORMATION
  Report Type: Spontaneous
  Country: IT (occurrence: IT)
  Receive Date: 20240715
  Receipt Date: 20240715
  Transmission Date: 20241017
  Serious: Yes (Other)
  Sender: ROCHE
  Company Number: None

PATIENT
  Age: 59 Year
  Sex: Female

DRUGS (2)
  1. BEVACIZUMAB [Suspect]
     Active Substance: BEVACIZUMAB
     Indication: Rectal cancer metastatic
     Dosage: INIZIO TERAPIA 08/03/2024 - TERAPIA OGNI 14 GIORNI - II CICLO 25/03/24, 09/04/2024 III CICLO, 23/04/
     Route: 042
     Dates: start: 20240325, end: 20240423
  2. LONSURF [Suspect]
     Active Substance: TIPIRACIL HYDROCHLORIDE\TRIFLURIDINE
     Indication: Rectal cancer metastatic
     Dosage: INIZIO DELLA TERAPIA A MARZO 2024, 35 MG/M2 X 2/DIE, SCHEMA TERAPEUTICO SECONDO PROTOCOLLO
     Route: 048

REACTIONS (2)
  - Myelosuppression [Recovering/Resolving]
  - Aspartate aminotransferase increased [Recovering/Resolving]

NARRATIVE: CASE EVENT DATE: 20240405
